FAERS Safety Report 6831695-0 (Version None)
Quarter: 2010Q3

REPORT INFORMATION
  Report Type: 
  Country: None (occurrence: None)
  Receive Date: 20100712
  Receipt Date: 20070227
  Transmission Date: 20110219
  Serious: No
  Sender: FDA-Public Use
  Company Number: US-PFIZER INC-2007015682

PATIENT
  Age: 49 Year
  Sex: Female

DRUGS (4)
  1. CHANTIX [Suspect]
  2. ATACAND HCT [Concomitant]
  3. ATACAND HCT [Concomitant]
  4. SYNTHROID [Concomitant]

REACTIONS (2)
  - NAUSEA [None]
  - POLLAKIURIA [None]
